FAERS Safety Report 4550668-4 (Version None)
Quarter: 2005Q1

REPORT INFORMATION
  Report Type: 
  Country: None (occurrence: None)
  Receive Date: 20050112
  Receipt Date: 20041216
  Transmission Date: 20050727
  Serious: Yes (Hospitalization)
  Sender: FDA-Public Use
  Company Number: CA-ABBOTT-04P-028-0284203-00

PATIENT
  Sex: Male

DRUGS (5)
  1. BIAXIN [Suspect]
     Indication: BRONCHITIS
     Dates: start: 20041117, end: 20041120
  2. HYDROXYCHLOROQUINE PHOSPHATE [Concomitant]
     Indication: DRUG USE FOR UNKNOWN INDICATION
  3. HALOPERIDOL [Concomitant]
     Indication: DRUG USE FOR UNKNOWN INDICATION
  4. ACETYLSALICYLIC ACID SRT [Concomitant]
     Indication: DRUG USE FOR UNKNOWN INDICATION
  5. ALLOPURINOL [Concomitant]
     Indication: PROPHYLAXIS

REACTIONS (8)
  - ABNORMAL BEHAVIOUR [None]
  - AGGRESSION [None]
  - AGITATION [None]
  - DELUSION [None]
  - GRANDIOSITY [None]
  - HALLUCINATION [None]
  - INSOMNIA [None]
  - LOGORRHOEA [None]
